FAERS Safety Report 8206622-4 (Version None)
Quarter: 2012Q1

REPORT INFORMATION
  Report Type: 
  Country: None (occurrence: None)
  Receive Date: 20120314
  Receipt Date: 20120307
  Transmission Date: 20120608
  Serious: Yes (Other)
  Sender: FDA-Public Use
  Company Number: US-BIOGENIDEC-2008BI029528

PATIENT
  Age: 51 Year
  Sex: Female

DRUGS (11)
  1. IBUPROFEN (ADVIL) [Concomitant]
  2. MIRAPEX [Concomitant]
  3. EXCEDRIN [Concomitant]
  4. TEGRETOL [Concomitant]
     Indication: NEURALGIA
  5. KLONOPIN [Concomitant]
     Indication: RESTLESS LEGS SYNDROME
  6. TYSABRI [Suspect]
     Indication: MULTIPLE SCLEROSIS
     Route: 042
     Dates: start: 20080421, end: 20090415
  7. LEXAPRO [Concomitant]
     Indication: DEPRESSION
  8. MOBIC [Concomitant]
  9. JANUVIA [Concomitant]
  10. LYRICA [Concomitant]
  11. AMANTADINE HCL [Concomitant]

REACTIONS (1)
  - CHRONIC LYMPHOCYTIC LEUKAEMIA [None]
